FAERS Safety Report 9793350 (Version 1)
Quarter: 2014Q1

REPORT INFORMATION
  Report Type: Report from Study
  Country: US (occurrence: US)
  Receive Date: 20140102
  Receipt Date: 20140102
  Transmission Date: 20141002
  Serious: Yes (Hospitalization)
  Sender: FDA-Public Use
  Company Number: US-ABBVIE-13P-163-1184575-00

PATIENT
  Age: 44 Year
  Sex: Female

DRUGS (6)
  1. HUMIRA [Suspect]
     Indication: CROHN^S DISEASE
     Dates: start: 20130911, end: 201311
  2. BENTYL [Concomitant]
     Indication: PRODUCT USED FOR UNKNOWN INDICATION
  3. BYSTOLIC [Concomitant]
     Indication: BLOOD PRESSURE INCREASED
  4. ELAVIL [Concomitant]
     Indication: INSOMNIA
     Dosage: AT BEDTIME
  5. GENERIC WELLBUTRIN [Concomitant]
     Indication: BIPOLAR DISORDER
  6. DEPAKOTE [Concomitant]
     Indication: BIPOLAR DISORDER

REACTIONS (5)
  - Suicide attempt [Not Recovered/Not Resolved]
  - Lymphadenopathy [Recovered/Resolved]
  - Lymphadenitis [Recovered/Resolved]
  - Urinary tract infection [Recovered/Resolved]
  - Micturition urgency [Unknown]
